FAERS Safety Report 5714446-2 (Version None)
Quarter: 2008Q2

REPORT INFORMATION
  Report Type: 
  Country: None (occurrence: None)
  Receive Date: 20080423
  Receipt Date: 20080415
  Transmission Date: 20081010
  Serious: Yes (Other)
  Sender: FDA-Public Use
  Company Number: US-AMGEN-US262335

PATIENT
  Sex: Male
  Weight: 84 kg

DRUGS (2)
  1. PROCRIT [Suspect]
     Indication: RENAL FAILURE CHRONIC
     Route: 058
     Dates: start: 20070520, end: 20070627
  2. ALLOPURINOL [Concomitant]

REACTIONS (1)
  - APLASIA PURE RED CELL [None]
